FAERS Safety Report 23491864 (Version 1)
Quarter: 2024Q1

REPORT INFORMATION
  Report Type: Report from Study
  Country: US (occurrence: US)
  Receive Date: 20240207
  Receipt Date: 20240207
  Transmission Date: 20240410
  Serious: No
  Sender: FDA-Public Use
  Company Number: US-ORG100014127-2023001072

PATIENT
  Age: 64 Year
  Sex: Female

DRUGS (10)
  1. LYSODREN [Suspect]
     Active Substance: MITOTANE
     Indication: Adrenal gland cancer
     Route: 048
     Dates: start: 20231107
  2. AMLODIPINE [Concomitant]
     Active Substance: AMLODIPINE BESYLATE
     Indication: Product used for unknown indication
  3. ATORVASTATIN TAB 80MG [Concomitant]
     Indication: Product used for unknown indication
  4. BENICAR TAB 5MG [Concomitant]
     Indication: Product used for unknown indication
  5. HYDROCORT TAB 5MG [Concomitant]
     Indication: Product used for unknown indication
  6. JARDIANCE TAB 25MG [Concomitant]
     Indication: Product used for unknown indication
  7. METFORMIN TAB 1000 ER [Concomitant]
     Indication: Product used for unknown indication
  8. METOPROLOL SUCCINATE [Concomitant]
     Active Substance: METOPROLOL SUCCINATE
     Indication: Product used for unknown indication
  9. NUVIGIL TAB 150MG [Concomitant]
     Indication: Product used for unknown indication
  10. ZIPSOR CAP 25MG [Concomitant]
     Indication: Product used for unknown indication

REACTIONS (1)
  - Brain fog [Unknown]
